FAERS Safety Report 8816619 (Version 1)
Quarter: 2012Q4

REPORT INFORMATION
  Report Type: Spontaneous
  Country: GB (occurrence: None)
  Receive Date: 20120928
  Receipt Date: 20120928
  Transmission Date: 20130627
  Serious: Yes (Hospitalization)
  Sender: FDA-Public Use
  Company Number: AUR-APL-2012-04096

PATIENT
  Age: 76 Year
  Sex: Male
  Weight: 69.8 kg

DRUGS (7)
  1. CITALOPRAM (CITALOPRAM) [Suspect]
     Indication: DEPRESSION
     Route: 048
  2. CLOPIDOGREL [Suspect]
     Route: 048
     Dates: end: 20120909
  3. FERROUS FUMARATE [Concomitant]
  4. PARACETAMOL [Concomitant]
  5. RANITIDINE [Concomitant]
  6. SIMVASTATIN [Concomitant]
  7. ZOPICLONE [Concomitant]

REACTIONS (1)
  - Rectal haemorrhage [None]
